FAERS Safety Report 4385533-9 (Version None)
Quarter: 2004Q2

REPORT INFORMATION
  Report Type: 
  Country: None (occurrence: None)
  Receive Date: 20040625
  Receipt Date: 20040625
  Transmission Date: 20050107
  Serious: No
  Sender: FDA-Public Use
  Company Number: None

PATIENT
  Age: 72 Year
  Sex: Female
  Weight: 62.5964 kg

DRUGS (1)
  1. MORPHINE [Suspect]
     Indication: PAIN
     Dosage: 2 MG IV
     Route: 042
     Dates: start: 20040310

REACTIONS (4)
  - ASTHENIA [None]
  - RESPIRATORY FAILURE [None]
  - SKIN DISCOLOURATION [None]
  - STRIDOR [None]
